FAERS Safety Report 12583046 (Version 3)
Quarter: 2016Q3

REPORT INFORMATION
  Report Type: Spontaneous
  Country: JP (occurrence: JP)
  Receive Date: 20160722
  Receipt Date: 20160910
  Transmission Date: 20161109
  Serious: Yes (Death, Life-Threatening, Hospitalization, Other)
  Sender: FDA-Public Use
  Company Number: JP-AMGEN-JPNSP2016094964

PATIENT
  Age: 80 Year
  Sex: Female
  Weight: 48 kg

DRUGS (32)
  1. G-LASTA [Suspect]
     Active Substance: PEGFILGRASTIM
     Indication: COLONY STIMULATING FACTOR PROPHYLAXIS
     Dosage: UNK
     Route: 058
     Dates: start: 20160630
  2. SERENACE [Suspect]
     Active Substance: HALOPERIDOL
     Dosage: 1.25 MG, QD
     Route: 041
     Dates: start: 20160711, end: 20160711
  3. MORPHINE HYDROCHLORIDE HYDRATE [Suspect]
     Active Substance: MORPHINE HYDROCHLORIDE
     Dosage: 12 MG, UNK
     Route: 041
     Dates: start: 20160708, end: 20160710
  4. MORPHINE HYDROCHLORIDE HYDRATE [Suspect]
     Active Substance: MORPHINE HYDROCHLORIDE
     Dosage: 15 MG, UNK
     Route: 041
     Dates: start: 20160710, end: 20160710
  5. MORPHINE HYDROCHLORIDE HYDRATE [Suspect]
     Active Substance: MORPHINE HYDROCHLORIDE
     Dosage: 20 MG, UNK
     Route: 041
     Dates: start: 20160710, end: 20160711
  6. KADIAN [Concomitant]
     Active Substance: MORPHINE SULFATE
     Indication: DYSPNOEA
     Dosage: 20 MG, QD
     Route: 048
     Dates: start: 20160702, end: 20160707
  7. FEBURIC [Concomitant]
     Active Substance: FEBUXOSTAT
     Dosage: 10 MG, QD
     Route: 048
     Dates: end: 20160707
  8. ENDOXAN [Concomitant]
     Active Substance: CYCLOPHOSPHAMIDE
     Indication: INFLAMMATORY CARCINOMA OF THE BREAST
     Dosage: 800 MG, UNK
     Route: 041
     Dates: start: 20160629, end: 20160629
  9. EMEND [Concomitant]
     Active Substance: APREPITANT
     Indication: PROPHYLAXIS OF NAUSEA AND VOMITING
     Dosage: 125 MG, QD
     Route: 048
     Dates: start: 20160629, end: 20160629
  10. EMEND [Concomitant]
     Active Substance: APREPITANT
     Dosage: 80 MG, QD
     Route: 048
     Dates: start: 20160630, end: 20160701
  11. VALSARTAN. [Concomitant]
     Active Substance: VALSARTAN
     Dosage: 40 MG, QD
     Route: 048
     Dates: start: 20140804, end: 20160707
  12. SAMSCA [Concomitant]
     Active Substance: TOLVAPTAN
     Dosage: 20 MG, QD
     Route: 048
     Dates: start: 20160615, end: 20160627
  13. DOXORUBICIN HYDROCHLORIDE. [Concomitant]
     Active Substance: DOXORUBICIN HYDROCHLORIDE
     Indication: INFLAMMATORY CARCINOMA OF THE BREAST
     Dosage: 80 MG, UNK
     Route: 041
     Dates: start: 20160629, end: 20160629
  14. DOXORUBICIN HYDROCHLORIDE. [Suspect]
     Active Substance: DOXORUBICIN HYDROCHLORIDE
     Indication: INFLAMMATORY CARCINOMA OF THE BREAST
     Dosage: 80 MG, QD
     Route: 041
     Dates: start: 20160629, end: 20160629
  15. SILECE [Suspect]
     Active Substance: FLUNITRAZEPAM
     Dosage: 0.5 MG, QD
     Route: 041
     Dates: start: 20160711, end: 20160711
  16. EDIROL [Concomitant]
     Active Substance: ELDECALCITOL
     Dosage: 0.75 MUG, QD
     Route: 048
     Dates: start: 20151102, end: 20160707
  17. G-LASTA [Suspect]
     Active Substance: PEGFILGRASTIM
     Indication: COLONY STIMULATING FACTOR PROPHYLAXIS
     Dosage: 3.6 MG, QD
     Route: 058
     Dates: start: 20160630, end: 20160630
  18. ALOXI [Concomitant]
     Active Substance: PALONOSETRON HYDROCHLORIDE
     Indication: PROPHYLAXIS OF NAUSEA AND VOMITING
     Dosage: 0.75 MG, QD
     Route: 041
     Dates: start: 20160629, end: 20160629
  19. DECADRON [Concomitant]
     Active Substance: DEXAMETHASONE
     Dosage: 4 MG, BID
     Route: 048
     Dates: start: 20160630, end: 20160702
  20. OPSO [Concomitant]
     Active Substance: MORPHINE HYDROCHLORIDE
     Indication: DYSPNOEA
     Dosage: 5 MG, PRN
     Route: 048
     Dates: start: 20160630, end: 20160708
  21. XARELTO [Concomitant]
     Active Substance: RIVAROXABAN
     Dosage: 15 MG, QD
     Route: 048
     Dates: start: 20140324, end: 20160707
  22. MAGLAX [Concomitant]
     Active Substance: MAGNESIUM OXIDE
     Dosage: 330 MG, QD
     Route: 048
     Dates: start: 20160702, end: 20160706
  23. NOVAMIN [Concomitant]
     Active Substance: PROCHLORPERAZINE MALEATE
     Dosage: 5 MG, PRN
     Route: 048
     Dates: start: 20160630, end: 20160630
  24. SERENACE [Suspect]
     Active Substance: HALOPERIDOL
     Indication: RESTLESSNESS
     Dosage: 1.25 MG, QD
     Route: 041
     Dates: start: 20160708, end: 20160708
  25. SILECE [Suspect]
     Active Substance: FLUNITRAZEPAM
     Indication: RESTLESSNESS
     Dosage: 0.5 MG, QD
     Route: 041
     Dates: start: 20160708, end: 20160708
  26. DECADRON [Concomitant]
     Active Substance: DEXAMETHASONE
     Indication: PROPHYLAXIS OF NAUSEA AND VOMITING
     Dosage: 13.2 MG, QD
     Route: 041
     Dates: start: 20160629, end: 20160629
  27. MORPHINE HYDROCHLORIDE HYDRATE [Suspect]
     Active Substance: MORPHINE HYDROCHLORIDE
     Indication: DYSPNOEA
     Dosage: 10 MG, UNK
     Route: 041
     Dates: start: 20160707, end: 20160708
  28. LENDORMIN D [Concomitant]
     Active Substance: BROTIZOLAM
     Dosage: 0.25 MG, QD
     Route: 048
     Dates: end: 20160707
  29. ENDOXAN [Suspect]
     Active Substance: CYCLOPHOSPHAMIDE
     Indication: INFLAMMATORY CARCINOMA OF THE BREAST
     Dosage: 800 MG, QD
     Route: 041
     Dates: start: 20160629, end: 20160629
  30. LASIX [Concomitant]
     Active Substance: FUROSEMIDE
     Dosage: 20 MG, QD
     Route: 048
     Dates: end: 20160707
  31. NORVASC [Concomitant]
     Active Substance: AMLODIPINE BESYLATE
     Dosage: 5 MG, QD
     Route: 048
     Dates: end: 20160707
  32. MEDICON [Concomitant]
     Active Substance: DEXTROMETHORPHAN HYDROBROMIDE
     Indication: COUGH
     Dosage: 15 MG, PRN
     Route: 048
     Dates: start: 20150611

REACTIONS (6)
  - Platelet count decreased [Not Recovered/Not Resolved]
  - Pneumonia [Fatal]
  - Colony stimulating factor therapy [Unknown]
  - Respiratory failure [Fatal]
  - Febrile neutropenia [Fatal]
  - Malaise [Not Recovered/Not Resolved]

NARRATIVE: CASE EVENT DATE: 20160706
